FAERS Safety Report 5859193-1 (Version None)
Quarter: 2008Q3

REPORT INFORMATION
  Report Type: 
  Country: None (occurrence: None)
  Receive Date: 20080825
  Receipt Date: 20080819
  Transmission Date: 20090109
  Serious: Yes (Death)
  Sender: FDA-Public Use
  Company Number: 2008SP016939

PATIENT
  Age: 50 Year
  Sex: Male

DRUGS (2)
  1. POSACONAZOLE [Suspect]
     Indication: FUNGAL INFECTION
     Dosage: 400 MG BID PO
     Route: 048
     Dates: start: 20051101, end: 20060101
  2. KEPPRA [Concomitant]

REACTIONS (2)
  - SKIN EXFOLIATION [None]
  - SQUAMOUS CELL CARCINOMA OF SKIN [None]
